FAERS Safety Report 11620732 (Version 3)
Quarter: 2015Q4

REPORT INFORMATION
  Report Type: Spontaneous
  Country: None (occurrence: US)
  Receive Date: 20151012
  Receipt Date: 20151113
  Transmission Date: 20160304
  Serious: No
  Sender: FDA-Public Use
  Company Number: US-KALEO, INC-EVZI20150009

PATIENT
  Age: 30 Year
  Sex: Female

DRUGS (2)
  1. BUTRANS [Concomitant]
     Active Substance: BUPRENORPHINE
     Indication: PAIN
     Route: 062
  2. EVZIO [Suspect]
     Active Substance: NALOXONE HYDROCHLORIDE
     Indication: MEDICAL DEVICE SITE INJURY
     Route: 050
     Dates: start: 20150902, end: 20150902

REACTIONS (2)
  - Pain [Recovered/Resolved]
  - Application site erythema [Recovering/Resolving]

NARRATIVE: CASE EVENT DATE: 20150902
